FAERS Safety Report 14756644 (Version 3)
Quarter: 2018Q2

REPORT INFORMATION
  Report Type: Spontaneous
  Country: US (occurrence: US)
  Receive Date: 20180413
  Receipt Date: 20180515
  Transmission Date: 20180711
  Serious: Yes (Death, Hospitalization, Other)
  Sender: FDA-Public Use
  Company Number: US-GLAXOSMITHKLINE-US2018062487

PATIENT
  Age: 65 Year
  Sex: Male

DRUGS (12)
  1. TAMSULOSIN [Concomitant]
     Active Substance: TAMSULOSIN
  2. BREO ELLIPTA [Suspect]
     Active Substance: FLUTICASONE FUROATE\VILANTEROL TRIFENATATE
     Indication: CHRONIC OBSTRUCTIVE PULMONARY DISEASE
     Dosage: 1 PUFF(S), QD
     Route: 055
     Dates: start: 20180404, end: 20180411
  3. FUROSEMIDE. [Concomitant]
     Active Substance: FUROSEMIDE
  4. EVEROLIMUS TABLETS [Concomitant]
  5. LAMOTRIGINE. [Concomitant]
     Active Substance: LAMOTRIGINE
  6. URSODIOL. [Concomitant]
     Active Substance: URSODIOL
  7. AMLODIPINE [Concomitant]
     Active Substance: AMLODIPINE BESYLATE
  8. BREO ELLIPTA [Suspect]
     Active Substance: FLUTICASONE FUROATE\VILANTEROL TRIFENATATE
     Indication: EMPHYSEMA
  9. LEVETIRACETAM. [Concomitant]
     Active Substance: LEVETIRACETAM
  10. MYCOPHENOLATE [Concomitant]
     Active Substance: MYCOPHENOLIC ACID
  11. HYDROCHLOROTHIAZIDE. [Concomitant]
     Active Substance: HYDROCHLOROTHIAZIDE
  12. TESTOSTERONE INJECTION [Concomitant]

REACTIONS (21)
  - Abdominal pain [Not Recovered/Not Resolved]
  - Mechanical ventilation [Unknown]
  - Oropharyngeal pain [Not Recovered/Not Resolved]
  - Condition aggravated [Unknown]
  - Gait inability [Unknown]
  - Loss of personal independence in daily activities [Unknown]
  - Blood bilirubin increased [Fatal]
  - Bile duct stent removal [Unknown]
  - Septic shock [Fatal]
  - Dizziness [Not Recovered/Not Resolved]
  - Back pain [Not Recovered/Not Resolved]
  - Cough [Not Recovered/Not Resolved]
  - Acute kidney injury [Fatal]
  - Insomnia [Not Recovered/Not Resolved]
  - Dry mouth [Unknown]
  - White blood cell count increased [Fatal]
  - Pyrexia [Not Recovered/Not Resolved]
  - Dialysis [Fatal]
  - Fall [Unknown]
  - Bacteraemia [Fatal]
  - Urinary tract infection bacterial [Fatal]

NARRATIVE: CASE EVENT DATE: 201804
